FAERS Safety Report 22790116 (Version 2)
Quarter: 2024Q4

REPORT INFORMATION
  Report Type: Spontaneous
  Country: DE (occurrence: DE)
  Receive Date: 20230804
  Receipt Date: 20241115
  Transmission Date: 20250115
  Serious: Yes (Hospitalization, Other)
  Sender: BRISTOL-MYERS SQUIBB COMPANY
  Company Number: DE-BRISTOL-MYERS SQUIBB COMPANY-2023-109687

PATIENT
  Age: 69 Year
  Sex: Male
  Weight: 78 kg

DRUGS (74)
  1. POMALIDOMIDE [Suspect]
     Active Substance: POMALIDOMIDE
     Indication: Product used for unknown indication
     Dosage: UNK
  2. DEXAMETHASONE [Suspect]
     Active Substance: DEXAMETHASONE
     Indication: Plasma cell myeloma refractory
     Dosage: 20 MG, OTHER, D1, D2, D8, D9
     Dates: start: 20211122, end: 20211122
  3. DEXAMETHASONE [Suspect]
     Active Substance: DEXAMETHASONE
     Dosage: 20 MG, OTHER, D1, D2, D8, D9
     Dates: start: 20211220, end: 20211221
  4. DEXAMETHASONE [Suspect]
     Active Substance: DEXAMETHASONE
     Dosage: 20 MG, OTHER, D1, D2, D8, D9
     Dates: start: 20220125, end: 20220215
  5. DEXAMETHASONE [Suspect]
     Active Substance: DEXAMETHASONE
     Dosage: 20 MG, OTHER, D1, D2, D8, D9
     Dates: start: 20220222, end: 20220309
  6. DEXAMETHASONE [Suspect]
     Active Substance: DEXAMETHASONE
     Dosage: 20 MG, OTHER, D1, D2, D8, D9
     Dates: start: 20220322, end: 20220406
  7. DEXAMETHASONE [Suspect]
     Active Substance: DEXAMETHASONE
     Dosage: 20 MG, OTHER, D1, D2, D8, D9
     Dates: start: 20220419, end: 20220504
  8. DEXAMETHASONE [Suspect]
     Active Substance: DEXAMETHASONE
     Dosage: 20 MG, OTHER, D1, D2, D8, D9
     Dates: start: 20220517, end: 20220601
  9. DEXAMETHASONE [Suspect]
     Active Substance: DEXAMETHASONE
     Dosage: 20 MG, OTHER, D1, D2, D8, D9
     Dates: start: 20220614, end: 20220629
  10. DEXAMETHASONE [Suspect]
     Active Substance: DEXAMETHASONE
     Dosage: 20 MG, OTHER, D1, D2, D8, D9
     Dates: start: 20220712, end: 20220727
  11. DEXAMETHASONE [Suspect]
     Active Substance: DEXAMETHASONE
     Dosage: 20 MG, OTHER, D1, D2, D8, D9
     Dates: start: 20220809, end: 20220824
  12. DEXAMETHASONE [Suspect]
     Active Substance: DEXAMETHASONE
     Dosage: 20 MG (D8, D9, D15, D16, D22)
     Dates: start: 20220104, end: 20220118
  13. DEXAMETHASONE [Suspect]
     Active Substance: DEXAMETHASONE
     Dosage: 20 MG, OTHER, D1, D2
     Dates: start: 20220906, end: 20220907
  14. DEXAMETHASONE [Suspect]
     Active Substance: DEXAMETHASONE
     Dosage: 20 MG (D1, D2, D8, D16, D15, D22, D9)
     Dates: start: 20211129, end: 20211214
  15. ISATUXIMAB [Suspect]
     Active Substance: ISATUXIMAB
     Indication: Plasma cell myeloma refractory
     Dosage: 680 MG, QW
     Route: 042
     Dates: start: 20211122, end: 20211122
  16. ISATUXIMAB [Suspect]
     Active Substance: ISATUXIMAB
     Dosage: 680 MG, QW
     Route: 042
     Dates: end: 20211213
  17. ISATUXIMAB [Suspect]
     Active Substance: ISATUXIMAB
     Dosage: 680 MG, OTHER
     Route: 042
     Dates: start: 20211220, end: 20211221
  18. ISATUXIMAB [Suspect]
     Active Substance: ISATUXIMAB
     Dosage: 680 MG, OTHER
     Route: 042
     Dates: start: 20220125, end: 20220215
  19. ISATUXIMAB [Suspect]
     Active Substance: ISATUXIMAB
     Dosage: 680 MG, OTHER
     Route: 042
     Dates: start: 20220222, end: 20220309
  20. ISATUXIMAB [Suspect]
     Active Substance: ISATUXIMAB
     Dosage: 680 MG, OTHER
     Route: 042
     Dates: start: 20220322, end: 20220406
  21. ISATUXIMAB [Suspect]
     Active Substance: ISATUXIMAB
     Dosage: 680 MG, OTHER
     Route: 042
     Dates: start: 20220419, end: 20220504
  22. ISATUXIMAB [Suspect]
     Active Substance: ISATUXIMAB
     Dosage: 680 MG, OTHER
     Route: 042
     Dates: start: 20220517, end: 20220601
  23. ISATUXIMAB [Suspect]
     Active Substance: ISATUXIMAB
     Dosage: 680 MG, OTHER
     Route: 042
     Dates: start: 20220614, end: 20220629
  24. ISATUXIMAB [Suspect]
     Active Substance: ISATUXIMAB
     Dosage: 680 MG, OTHER
     Route: 042
     Dates: start: 20220712, end: 20220727
  25. ISATUXIMAB [Suspect]
     Active Substance: ISATUXIMAB
     Dosage: 680 MG, OTHER
     Route: 042
     Dates: start: 20220809, end: 20220824
  26. ISATUXIMAB [Suspect]
     Active Substance: ISATUXIMAB
     Dosage: 680 MG, D15
     Dates: start: 20220111, end: 20220111
  27. ISATUXIMAB [Suspect]
     Active Substance: ISATUXIMAB
     Dosage: 680 MG, OTHER
     Route: 042
     Dates: start: 20220906, end: 20220907
  28. ISATUXIMAB [Suspect]
     Active Substance: ISATUXIMAB
     Dosage: 680 MG, BIW
     Route: 042
     Dates: start: 20220322, end: 20220405
  29. ISATUXIMAB [Suspect]
     Active Substance: ISATUXIMAB
     Dosage: 680 MG, BIW
     Route: 042
     Dates: start: 20220419, end: 20220503
  30. ISATUXIMAB [Suspect]
     Active Substance: ISATUXIMAB
     Dosage: 680 MG, BIW
     Route: 042
     Dates: start: 20220712, end: 20220726
  31. ISATUXIMAB [Suspect]
     Active Substance: ISATUXIMAB
     Dosage: 20 MG, (D8, D9, D15, D16, D22)
     Dates: start: 20220104, end: 20220118
  32. ISATUXIMAB [Suspect]
     Active Substance: ISATUXIMAB
     Dosage: 20 MG, (D1, D2, D8, D16, D15, D22, D9)
     Dates: start: 20211129, end: 20211214
  33. CARFILZOMIB [Suspect]
     Active Substance: CARFILZOMIB
     Indication: Plasma cell myeloma refractory
     Dosage: 27 MG, OTHER
     Dates: start: 20211122, end: 20211122
  34. CARFILZOMIB [Suspect]
     Active Substance: CARFILZOMIB
     Dosage: 74 MG, OTHER
     Dates: start: 20211122, end: 20211123
  35. CARFILZOMIB [Suspect]
     Active Substance: CARFILZOMIB
     Dosage: 74 MG (OTHER D8, D9, D15, 16)
     Dates: start: 20211127
  36. CARFILZOMIB [Suspect]
     Active Substance: CARFILZOMIB
     Dosage: 74 MG, OTHER, D8, D9
     Dates: start: 20211129, end: 20211130
  37. CARFILZOMIB [Suspect]
     Active Substance: CARFILZOMIB
     Dosage: 74 MG, OTHER, D1, D2, D8, D9
     Dates: start: 20211220, end: 20211221
  38. CARFILZOMIB [Suspect]
     Active Substance: CARFILZOMIB
     Dosage: 74 MG, OTHER, D1, D2, D8, D9
     Dates: start: 20220125, end: 20220209
  39. CARFILZOMIB [Suspect]
     Active Substance: CARFILZOMIB
     Dosage: 74 MG, OTHER, D1, D2, D8, D9
     Dates: start: 20220222, end: 20220309
  40. CARFILZOMIB [Suspect]
     Active Substance: CARFILZOMIB
     Dosage: 74 MG, OTHER, D1, D2, D8, D9
     Dates: start: 20220322, end: 20220406
  41. CARFILZOMIB [Suspect]
     Active Substance: CARFILZOMIB
     Dosage: 74 MG, OTHER, D1, D2, D8, D9
     Dates: start: 20220419, end: 20220504
  42. CARFILZOMIB [Suspect]
     Active Substance: CARFILZOMIB
     Dosage: 74 MG, OTHER, D1, D2, D8, D9
     Dates: start: 20220517, end: 20220601
  43. CARFILZOMIB [Suspect]
     Active Substance: CARFILZOMIB
     Dosage: 74 MG, OTHER, D1, D2, D8, D9
     Dates: start: 20220614, end: 20220629
  44. CARFILZOMIB [Suspect]
     Active Substance: CARFILZOMIB
     Dosage: 74 MG, OTHER, D1, D2, D8, D9
     Dates: start: 20220712, end: 20220727
  45. CARFILZOMIB [Suspect]
     Active Substance: CARFILZOMIB
     Dosage: 74 MG, OTHER, D1, D2, D8, D9
     Dates: start: 20220809, end: 20220824
  46. CARFILZOMIB [Suspect]
     Active Substance: CARFILZOMIB
     Dosage: 74 MG (D1, D2, D8, D9)
     Dates: start: 20220104, end: 20220112
  47. CARFILZOMIB [Suspect]
     Active Substance: CARFILZOMIB
     Dosage: 74 MG, OTHER, D1, D2
     Dates: start: 20220906, end: 20220907
  48. HYDROMORPHONE HYDROCHLORIDE [Concomitant]
     Active Substance: HYDROMORPHONE HYDROCHLORIDE
     Indication: Bone pain
     Dosage: UNK
     Dates: start: 20170815
  49. PANTOPRAZOLE [Concomitant]
     Active Substance: PANTOPRAZOLE
     Indication: Gastritis prophylaxis
     Dosage: UNK
     Dates: start: 20201026
  50. TAMSULOSIN [Concomitant]
     Active Substance: TAMSULOSIN
     Indication: Benign prostatic hyperplasia
     Dosage: UNK
     Dates: start: 2005
  51. HUMAN RED BLOOD CELL [Concomitant]
     Active Substance: HUMAN RED BLOOD CELL
     Indication: Anaemia
     Dosage: UNK
     Dates: start: 20210927
  52. HUMAN RED BLOOD CELL [Concomitant]
     Active Substance: HUMAN RED BLOOD CELL
     Indication: Pancytopenia
     Dosage: UNK
     Dates: start: 20220926, end: 20220926
  53. HUMAN RED BLOOD CELL [Concomitant]
     Active Substance: HUMAN RED BLOOD CELL
     Dosage: UNK
     Dates: start: 202210, end: 202210
  54. ACYCLOVIR [Concomitant]
     Active Substance: ACYCLOVIR
     Indication: Infection prophylaxis
     Dosage: UNK
     Dates: start: 20170911
  55. METAMIZOLE [Concomitant]
     Active Substance: METAMIZOLE
     Indication: Bone pain
     Dosage: UNK
     Dates: start: 20170815
  56. MONTELUKAST [Concomitant]
     Active Substance: MONTELUKAST
     Indication: Rhinitis allergic
     Dosage: UNK
     Dates: start: 20211025
  57. PREGABALIN [Concomitant]
     Active Substance: PREGABALIN
     Indication: Bone pain
     Dosage: UNK
     Dates: start: 20170911
  58. CLEMASTINE [Concomitant]
     Active Substance: CLEMASTINE
     Indication: Allergy prophylaxis
     Dosage: UNK
  59. CLEMASTINE [Concomitant]
     Active Substance: CLEMASTINE
     Dosage: UNK
     Dates: start: 20211122, end: 20220906
  60. PLATELETS [Concomitant]
     Active Substance: HUMAN PLATELET, ALLOGENIC
     Indication: Thrombocytopenia
     Dosage: UNK
     Dates: start: 20210601
  61. PLATELETS [Concomitant]
     Active Substance: HUMAN PLATELET, ALLOGENIC
     Dosage: UNK
     Dates: start: 20211108, end: 20211108
  62. PLATELETS [Concomitant]
     Active Substance: HUMAN PLATELET, ALLOGENIC
     Dosage: UNK
     Dates: start: 20221004, end: 20221004
  63. SULFAMETHOXAZOLE\TRIMETHOPRIM [Concomitant]
     Active Substance: SULFAMETHOXAZOLE\TRIMETHOPRIM
     Indication: Infection prophylaxis
     Dosage: UNK
     Dates: start: 20170911
  64. POLYETHYLENE GLYCOLS [Concomitant]
     Active Substance: POLYETHYLENE GLYCOLS
     Indication: Constipation
     Dosage: UNK UNK, PRN
     Dates: start: 2017
  65. VITAMIN B12 [Concomitant]
     Active Substance: CYANOCOBALAMIN
     Indication: Anaemia
     Dosage: UNK
     Dates: start: 20221006
  66. ALIZAPRIDE [Concomitant]
     Active Substance: ALIZAPRIDE
     Indication: Nausea
     Dosage: UNK
     Dates: start: 20211102
  67. FOLIC ACID [Concomitant]
     Active Substance: FOLIC ACID
     Indication: Anaemia
     Dosage: UNK
     Dates: start: 20221006
  68. ACETAMINOPHEN [Concomitant]
     Active Substance: ACETAMINOPHEN
     Indication: Pyrexia
     Dosage: UNK
  69. ACETAMINOPHEN [Concomitant]
     Active Substance: ACETAMINOPHEN
     Dosage: UNK
  70. ACETAMINOPHEN [Concomitant]
     Active Substance: ACETAMINOPHEN
     Dosage: UNK
     Dates: start: 20211122, end: 20220906
  71. POTASSIUM CHLORIDE [Concomitant]
     Active Substance: POTASSIUM CHLORIDE
     Indication: Hypokalaemia
     Dosage: UNK
  72. MEROPENEM [Concomitant]
     Active Substance: MEROPENEM
     Indication: Pancytopenia
     Dosage: UNK
     Dates: start: 202210, end: 20221206
  73. MEROPENEM [Concomitant]
     Active Substance: MEROPENEM
     Indication: Polyneuropathy
  74. PAMIDRONATE [Concomitant]
     Active Substance: PAMIDRONATE DISODIUM
     Indication: Osteolysis
     Dosage: UNK
     Dates: start: 20170815

REACTIONS (12)
  - Plasma cell leukaemia [Not Recovered/Not Resolved]
  - Febrile neutropenia [Recovered/Resolved]
  - Pyrexia [Recovered/Resolved]
  - Haematochezia [Recovered/Resolved]
  - Neutropenia [Recovered/Resolved]
  - Cough [Recovered/Resolved]
  - Heart rate increased [Recovered/Resolved]
  - Vomiting [Recovered/Resolved]
  - General physical health deterioration [Recovered/Resolved]
  - Oedema mucosal [Recovered/Resolved]
  - Tachycardia [Recovered/Resolved]
  - Pulpitis dental [Recovered/Resolved]

NARRATIVE: CASE EVENT DATE: 20220904
